FAERS Safety Report 11719787 (Version 2)
Quarter: 2015Q4

REPORT INFORMATION
  Report Type: Spontaneous
  Country: IL (occurrence: IL)
  Receive Date: 20151110
  Receipt Date: 20151111
  Transmission Date: 20160304
  Serious: Yes (Other)
  Sender: FDA-Public Use
  Company Number: IL-TEVA-608183ISR

PATIENT
  Sex: Female

DRUGS (1)
  1. PROVIGIL [Suspect]
     Active Substance: MODAFINIL
     Indication: MULTIPLE SCLEROSIS
     Route: 048

REACTIONS (4)
  - Dysstasia [Unknown]
  - Fatigue [Unknown]
  - Multiple sclerosis [Unknown]
  - Condition aggravated [Unknown]
